FAERS Safety Report 5716823-2 (Version None)
Quarter: 2008Q2

REPORT INFORMATION
  Report Type: 
  Country: None (occurrence: None)
  Receive Date: 20080424
  Receipt Date: 20070814
  Transmission Date: 20081010
  Serious: No
  Sender: FDA-Public Use
  Company Number: US-BAYER-200712754BWH

PATIENT
  Sex: Male

DRUGS (4)
  1. LEVITRA [Suspect]
     Indication: DRUG USE FOR UNKNOWN INDICATION
     Dosage: TOTAL DAILY DOSE: 10 MG  UNIT DOSE: 20 MG
     Route: 048
     Dates: start: 20070101
  2. AVODART [Concomitant]
  3. FLOMAX [Concomitant]
  4. DIOVAN [Concomitant]

REACTIONS (1)
  - PROSTATIC DISORDER [None]
